FAERS Safety Report 5850819-5 (Version None)
Quarter: 2008Q3

REPORT INFORMATION
  Report Type: 
  Country: None (occurrence: None)
  Receive Date: 20080820
  Receipt Date: 20080812
  Transmission Date: 20090109
  Serious: Yes (Death, Life-Threatening, Other)
  Sender: FDA-Public Use
  Company Number: GB-JNJFOC-20080703703

PATIENT
  Sex: Female
  Weight: 45.81 kg

DRUGS (13)
  1. REMICADE [Suspect]
     Indication: RHEUMATOID ARTHRITIS
     Route: 042
  2. METHOTREXATE SODIUM [Concomitant]
  3. BENDROFLUAZIDE [Concomitant]
  4. FOLIC ACID [Concomitant]
  5. INDOMETHACIN [Concomitant]
  6. LANSOPRAZOLE [Concomitant]
  7. SALAZOPYRIN [Concomitant]
  8. THYROXINE [Concomitant]
  9. ACETAMINOPHEN W/ CODEINE [Concomitant]
  10. ALLOPURINOL [Concomitant]
  11. ATENOLOL [Concomitant]
  12. PREDNISOLONE [Concomitant]
  13. AMPLODIPINE [Concomitant]

REACTIONS (3)
  - FEMORAL NECK FRACTURE [None]
  - STAPHYLOCOCCAL SEPSIS [None]
  - URINARY TRACT INFECTION [None]
